FAERS Safety Report 7482261-8 (Version None)
Quarter: 2011Q2

REPORT INFORMATION
  Report Type: 
  Country: None (occurrence: None)
  Receive Date: 20110516
  Receipt Date: 20110510
  Transmission Date: 20111010
  Serious: No
  Sender: FDA-Public Use
  Company Number: US-PFIZER INC-2011070136

PATIENT
  Sex: Male
  Weight: 90.7 kg

DRUGS (7)
  1. CELEBREX [Suspect]
     Indication: BACK PAIN
     Dosage: 200 MG, 2X/DAY
     Route: 048
  2. ASPIRIN [Suspect]
     Dosage: UNK
  3. NAPROXEN [Suspect]
     Dosage: UNK
  4. ACETAMINOPHEN [Concomitant]
     Dosage: UNK
  5. IBUPROFEN [Suspect]
     Dosage: UNK
  6. FISH OIL [Concomitant]
     Dosage: UNK
  7. CELEBREX [Suspect]
     Indication: PAIN IN EXTREMITY

REACTIONS (7)
  - DIARRHOEA [None]
  - NAUSEA [None]
  - VOMITING [None]
  - DRUG DOSE OMISSION [None]
  - TINNITUS [None]
  - ABDOMINAL DISCOMFORT [None]
  - ERUCTATION [None]
